FAERS Safety Report 5779585-9 (Version None)
Quarter: 2008Q2

REPORT INFORMATION
  Report Type: 
  Country: None (occurrence: None)
  Receive Date: 20080619
  Receipt Date: 20070521
  Transmission Date: 20081010
  Serious: No
  Sender: FDA-Public Use
  Company Number: US-ASTRAZENECA-2007UW12553

PATIENT
  Sex: Female

DRUGS (3)
  1. ATACAND HCT [Suspect]
     Route: 048
  2. DETROL [Concomitant]
  3. ATENOLOL [Concomitant]
     Route: 048

REACTIONS (1)
  - DRY MOUTH [None]
